FAERS Safety Report 9036999 (Version 1)
Quarter: 2013Q1

REPORT INFORMATION
  Report Type: Report from Study
  Country: US (occurrence: US)
  Receive Date: 20130129
  Receipt Date: 20130129
  Transmission Date: 20140127
  Serious: No
  Sender: FDA-Public Use
  Company Number: US-ABBOTT-12P-163-0898874-00

PATIENT
  Sex: Female
  Weight: 86.26 kg

DRUGS (5)
  1. HUMIRA 40 MG/ 0.8 ML PRE-FILLED SYRINGE [Suspect]
     Indication: CROHN^S DISEASE
     Dates: start: 201012, end: 201110
  2. PREDNISONE [Concomitant]
     Indication: CROHN^S DISEASE
  3. ZYRTEC [Concomitant]
     Indication: HYPERSENSITIVITY
  4. PRILOSEC [Concomitant]
     Indication: GASTROOESOPHAGEAL REFLUX DISEASE
  5. GLUCOPHAGE [Concomitant]
     Indication: DIABETES MELLITUS

REACTIONS (8)
  - Nasopharyngitis [Recovered/Resolved]
  - Sinusitis [Recovered/Resolved]
  - Oral herpes [Recovered/Resolved]
  - Red blood cell sedimentation rate increased [Not Recovered/Not Resolved]
  - C-reactive protein increased [Not Recovered/Not Resolved]
  - Joint swelling [Not Recovered/Not Resolved]
  - Joint swelling [Not Recovered/Not Resolved]
  - Drug effect incomplete [Not Recovered/Not Resolved]
